FAERS Safety Report 21419736 (Version 1)
Quarter: 2022Q4

REPORT INFORMATION
  Report Type: Spontaneous
  Country: US (occurrence: None)
  Receive Date: 20221005
  Receipt Date: 20221005
  Transmission Date: 20230113
  Serious: Yes (Other)
  Sender: FDA-Public Use
  Company Number: None

PATIENT
  Age: 58 Year
  Sex: Male

DRUGS (1)
  1. HUMIRA [Suspect]
     Active Substance: ADALIMUMAB
     Route: 058
     Dates: start: 202008

REACTIONS (5)
  - Pyrexia [None]
  - Chills [None]
  - Nasopharyngitis [None]
  - Device leakage [None]
  - Device issue [None]

NARRATIVE: CASE EVENT DATE: 20221002
